FAERS Safety Report 15434636 (Version 1)
Quarter: 2018Q3

REPORT INFORMATION
  Report Type: Report from Study
  Country: AU (occurrence: AU)
  Receive Date: 20180927
  Receipt Date: 20180927
  Transmission Date: 20181010
  Serious: Yes (Hospitalization)
  Sender: FDA-Public Use
  Company Number: AU-MYLANLABS-2018M1062877

PATIENT
  Age: 20 Year
  Sex: Male

DRUGS (1)
  1. CLOZARIL [Suspect]
     Active Substance: CLOZAPINE
     Indication: SCHIZOPHRENIA
     Dosage: 350 MG, UNK
     Route: 048
     Dates: start: 20171103

REACTIONS (5)
  - Paranoia [Unknown]
  - Drug dose omission [Unknown]
  - Neutrophil count decreased [Recovered/Resolved]
  - Anxiety [Unknown]
  - Hospitalisation [Unknown]

NARRATIVE: CASE EVENT DATE: 201808
